FAERS Safety Report 23888089 (Version 1)
Quarter: 2024Q2

REPORT INFORMATION
  Report Type: Spontaneous
  Country: US (occurrence: US)
  Receive Date: 20240523
  Receipt Date: 20240523
  Transmission Date: 20240716
  Serious: No
  Sender: FDA-Public Use
  Company Number: US-AUROBINDO-AUR-APL-2023-061675

PATIENT
  Age: 84 Year
  Sex: Male
  Weight: 89.8 kg

DRUGS (7)
  1. LORATADINE [Suspect]
     Active Substance: LORATADINE
     Indication: Seasonal allergy
     Dosage: 1 DOSAGE FORM, ONCE A DAY (ONE TABLET BY MOUTH AT 6PM IN THE EVENING)
     Route: 048
  2. METOPROLOL [Concomitant]
     Active Substance: METOPROLOL
     Indication: Product used for unknown indication
     Dosage: UNK (MORNING MEDICATION TAKEN AT 07:30 OR 08:00 AM )
     Route: 065
  3. DUTASTERIDE [Concomitant]
     Active Substance: DUTASTERIDE
     Indication: Product used for unknown indication
     Dosage: UNK (MORNING MEDICATION TAKEN AT 07:30 OR 08:00 AM)
     Route: 065
  4. FUROSEMIDE [Concomitant]
     Active Substance: FUROSEMIDE
     Indication: Product used for unknown indication
     Dosage: UNK (MORNING MEDICATION TAKEN AT 07:30 OR 08:00 AM )
  5. GABAPENTIN [Concomitant]
     Active Substance: GABAPENTIN
     Indication: Product used for unknown indication
     Dosage: UNK (MORNING MEDICATION TAKEN AT 07:30 OR 08:00 AM)
     Route: 065
  6. XARELTO [Concomitant]
     Active Substance: RIVAROXABAN
     Indication: Product used for unknown indication
     Dosage: UNK (BLOOD MEDICATION)
     Route: 065
  7. TAMSULOSIN [Concomitant]
     Active Substance: TAMSULOSIN
     Indication: Product used for unknown indication
     Dosage: UNK (TAKES NIGHT MEDICATIONS AT 08:30 PM)
     Route: 065

REACTIONS (2)
  - Sneezing [Recovered/Resolved]
  - Product quality issue [Unknown]

NARRATIVE: CASE EVENT DATE: 20230926
